FAERS Safety Report 9177524 (Version 1)
Quarter: 2013Q1

REPORT INFORMATION
  Report Type: Spontaneous
  Country: AR (occurrence: AR)
  Receive Date: 20130321
  Receipt Date: 20130321
  Transmission Date: 20140127
  Serious: Yes (Other)
  Sender: FDA-Public Use
  Company Number: PHHY2013AR022701

PATIENT
  Age: 62 Year
  Sex: Female

DRUGS (3)
  1. AFINITOR [Suspect]
     Indication: BREAST CANCER
     Dosage: 10 MG,DAILY
     Dates: start: 20121028, end: 20121215
  2. AFINITOR [Suspect]
     Dosage: 5 MG, DAILY
     Dates: start: 20130130
  3. EXEMESTANE [Concomitant]

REACTIONS (8)
  - Peritonitis bacterial [Recovered/Resolved]
  - Abdominal pain [Recovered/Resolved]
  - Diarrhoea [Recovered/Resolved]
  - Ascites [Recovered/Resolved]
  - Vomiting [Recovered/Resolved]
  - Diverticulum [Unknown]
  - Immunosuppression [Unknown]
  - Mucosal inflammation [Unknown]
